FAERS Safety Report 7549800-X (Version None)
Quarter: 2011Q2

REPORT INFORMATION
  Report Type: 
  Country: None (occurrence: None)
  Receive Date: 20110615
  Receipt Date: 20060803
  Transmission Date: 20111010
  Serious: Yes (Hospitalization)
  Sender: FDA-Public Use
  Company Number: PHFR2005GB00952

PATIENT
  Sex: Female

DRUGS (5)
  1. SIMVASTATIN [Concomitant]
     Dosage: 10 MG, QD
     Route: 048
  2. ANASTROZOLE [Concomitant]
     Dosage: 1 MG, QD
     Route: 048
  3. CLOZAPINE [Suspect]
     Indication: SCHIZOPHRENIA
     Dosage: 150 MG, QD
     Route: 048
     Dates: start: 20030324
  4. IBUPROFEN [Concomitant]
     Indication: BACK PAIN
     Route: 061
  5. FERROUS SULFATE TAB [Concomitant]
     Dosage: 300 MG, TID
     Route: 048

REACTIONS (5)
  - BACK PAIN [None]
  - CHEST X-RAY ABNORMAL [None]
  - CHEST PAIN [None]
  - BREAST CANCER [None]
  - DYSPNOEA [None]
